FAERS Safety Report 7416973-9 (Version None)
Quarter: 2011Q2

REPORT INFORMATION
  Report Type: 
  Country: None (occurrence: None)
  Receive Date: 20110415
  Receipt Date: 20110411
  Transmission Date: 20111010
  Serious: Yes (Other)
  Sender: FDA-Public Use
  Company Number: KR-GENZYME-FLUD-1001053

PATIENT

DRUGS (17)
  1. BUSULFAN [Suspect]
     Indication: STEM CELL TRANSPLANT
     Dosage: 130 MG/M2, QD X 4 DAYS OVER 3 HOURS ON DAYS -6 TO -3
     Route: 042
  2. FLUCONAZOLE [Concomitant]
     Indication: INFECTION PROPHYLAXIS
     Dosage: 100 MG, QD
     Route: 048
  3. HEPARIN [Concomitant]
     Indication: PROPHYLAXIS
     Dosage: 100 U/KG, QD CONTINUOUS INFUSION
     Route: 041
  4. THYMOGLOBULIN [Suspect]
     Indication: HAEMATOLOGICAL MALIGNANCY
  5. METHOTREXATE [Concomitant]
     Dosage: 10 MG/M2, QD ON DAYS +3, +6, AND +11
     Route: 065
  6. CIPROFLOXACIN [Concomitant]
     Indication: INFECTION PROPHYLAXIS
     Dosage: 500 MG, BID
     Route: 048
  7. FLUDARA [Suspect]
     Indication: STEM CELL TRANSPLANT
     Dosage: 40 MG/M2, QD X 4 DAYS OVER 30 MINUTES ON DAYS -6 TO -3
     Route: 042
  8. ACYCLOVIR [Concomitant]
     Indication: INFECTION PROPHYLAXIS
     Dosage: 250 MG/M2, Q8H
     Route: 042
  9. FLUDARA [Suspect]
     Indication: HAEMATOLOGICAL MALIGNANCY
  10. METHOTREXATE [Concomitant]
     Indication: PROPHYLAXIS AGAINST GRAFT VERSUS HOST DISEASE
     Dosage: 15 MG/M2, QD ON DAY +1
     Route: 065
  11. URSODIOL [Concomitant]
     Indication: PROPHYLAXIS
     Dosage: 100 MG, TID
     Route: 048
  12. BUSULFAN [Suspect]
     Indication: HAEMATOLOGICAL MALIGNANCY
  13. THYMOGLOBULIN [Suspect]
     Indication: STEM CELL TRANSPLANT
     Dosage: 2 MG/KG, QD FROM DAYS -3 TO -1
     Route: 042
  14. CYCLOSPORINE [Concomitant]
     Indication: PROPHYLAXIS AGAINST GRAFT VERSUS HOST DISEASE
     Dosage: 1.5 MG/KG, Q12HR OVER 3 HOURS ON DAYS -1 TO +14
     Route: 042
  15. CYCLOSPORINE [Concomitant]
     Dosage: 4-6 MG/KG, BID, ADJUSTED AFTER THERAPEUTIC LEVEL OF 200-400 NG/ML
     Route: 048
  16. SULFAMETHOXAZOLE W [Concomitant]
     Indication: INFECTION PROPHYLAXIS
     Dosage: 960 MG, 3X/W
     Route: 048
  17. PHENYTOIN [Concomitant]
     Indication: PRODUCT USED FOR UNKNOWN INDICATION
     Dosage: UNK, QD DURING AND 1 DAY AFTER IV BUSULFAN THERAPY
     Route: 065

REACTIONS (9)
  - ACUTE GRAFT VERSUS HOST DISEASE [None]
  - NAUSEA [None]
  - CYSTITIS HAEMORRHAGIC [None]
  - CYTOMEGALOVIRUS TEST POSITIVE [None]
  - CHRONIC GRAFT VERSUS HOST DISEASE [None]
  - MUCOSAL INFLAMMATION [None]
  - VOMITING [None]
  - PNEUMONIA CYTOMEGALOVIRAL [None]
  - VENOOCCLUSIVE LIVER DISEASE [None]
